FAERS Safety Report 6437252-2 (Version None)
Quarter: 2009Q4

REPORT INFORMATION
  Report Type: 
  Country: None (occurrence: None)
  Receive Date: 20091112
  Receipt Date: 20091102
  Transmission Date: 20100525
  Serious: Yes (Hospitalization, Other)
  Sender: FDA-Public Use
  Company Number: AU-ROCHE-666119

PATIENT
  Age: 6 Year
  Sex: Male

DRUGS (5)
  1. ISOTRETINOIN [Interacting]
     Indication: NEUROBLASTOMA
     Route: 048
  2. ISOTRETINOIN [Interacting]
     Route: 048
  3. CH14.18 (ANTI-GD2 MONOCLONAL ANTIBODY) [Interacting]
     Indication: NEUROBLASTOMA
     Route: 042
  4. ALDESLEUKIN [Suspect]
     Indication: NEUROBLASTOMA
     Route: 042
  5. SARGRAMOSTIM [Suspect]
     Indication: NEUROBLASTOMA
     Dosage: ROUTE: SUBCUTANEOUSLY OR INTRAVENOUSLY
     Route: 065

REACTIONS (4)
  - BONE LESION [None]
  - DRUG INTERACTION [None]
  - HYPERCALCAEMIA [None]
  - TIBIA FRACTURE [None]
